FAERS Safety Report 8481524-7 (Version None)
Quarter: 2012Q3

REPORT INFORMATION
  Report Type: 
  Country: None (occurrence: None)
  Receive Date: 20120702
  Receipt Date: 20120622
  Transmission Date: 20120928
  Serious: Yes (Other)
  Sender: FDA-Public Use
  Company Number: US-JNJFOC-20100804622

PATIENT
  Sex: Female

DRUGS (4)
  1. SYNTHROID [Concomitant]
     Indication: HYPOTHYROIDISM
     Route: 065
  2. LEVAQUIN [Suspect]
     Indication: URINARY TRACT INFECTION
     Route: 048
     Dates: start: 20020101, end: 20090301
  3. METHYLPREDNISOLONE [Suspect]
     Indication: INFLAMMATION
     Route: 065
  4. PREMARIN [Concomitant]
     Indication: OESTROGEN THERAPY
     Route: 065

REACTIONS (4)
  - TENDON RUPTURE [None]
  - PLANTAR FASCIITIS [None]
  - LIMB INJURY [None]
  - BURSITIS [None]
